FAERS Safety Report 18994223 (Version 14)
Quarter: 2025Q2

REPORT INFORMATION
  Report Type: Report from Study
  Country: DE (occurrence: DE)
  Receive Date: 20210310
  Receipt Date: 20250520
  Transmission Date: 20250716
  Serious: Yes (Hospitalization, Other)
  Sender: MYLAN
  Company Number: DE-ROCHE-2239868

PATIENT
  Age: 32 Year
  Sex: Female
  Weight: 48.8 kg

DRUGS (72)
  1. LYRICA [Suspect]
     Active Substance: PREGABALIN
     Indication: Product used for unknown indication
     Dosage: 25 MG, 4X/DAY (3-1-3-1GRADUALLY DISCONTINUED)
  2. LYRICA [Suspect]
     Active Substance: PREGABALIN
     Dosage: 25 MG, 4X/DAY (3-1-3-1GRADUALLY DISCONTINUED)
  3. LYRICA [Suspect]
     Active Substance: PREGABALIN
     Dosage: 25 MG, 4X/DAY (3-1-3-1GRADUALLY DISCONTINUED)
     Route: 065
  4. LYRICA [Suspect]
     Active Substance: PREGABALIN
     Dosage: 25 MG, 4X/DAY (3-1-3-1GRADUALLY DISCONTINUED)
     Route: 065
  5. LYRICA [Suspect]
     Active Substance: PREGABALIN
  6. LYRICA [Suspect]
     Active Substance: PREGABALIN
  7. LYRICA [Suspect]
     Active Substance: PREGABALIN
     Route: 065
  8. LYRICA [Suspect]
     Active Substance: PREGABALIN
     Route: 065
  9. OCREVUS [Suspect]
     Active Substance: OCRELIZUMAB
     Indication: Relapsing-remitting multiple sclerosis
     Dosage: 300 MG, 2X/WEEK
     Dates: start: 20181012
  10. OCREVUS [Suspect]
     Active Substance: OCRELIZUMAB
     Dosage: 300 MG, 2X/WEEK
     Dates: start: 20181012
  11. OCREVUS [Suspect]
     Active Substance: OCRELIZUMAB
     Dosage: 300 MG, 2X/WEEK
     Route: 042
     Dates: start: 20181012
  12. OCREVUS [Suspect]
     Active Substance: OCRELIZUMAB
     Dosage: 300 MG, 2X/WEEK
     Route: 042
     Dates: start: 20181012
  13. OCREVUS [Suspect]
     Active Substance: OCRELIZUMAB
     Route: 042
  14. OCREVUS [Suspect]
     Active Substance: OCRELIZUMAB
     Route: 042
  15. OCREVUS [Suspect]
     Active Substance: OCRELIZUMAB
  16. OCREVUS [Suspect]
     Active Substance: OCRELIZUMAB
  17. OCREVUS [Suspect]
     Active Substance: OCRELIZUMAB
     Route: 058
  18. OCREVUS [Suspect]
     Active Substance: OCRELIZUMAB
     Route: 058
  19. OCREVUS [Suspect]
     Active Substance: OCRELIZUMAB
  20. OCREVUS [Suspect]
     Active Substance: OCRELIZUMAB
  21. OCREVUS [Suspect]
     Active Substance: OCRELIZUMAB
     Route: 042
  22. OCREVUS [Suspect]
     Active Substance: OCRELIZUMAB
     Route: 042
  23. OCREVUS [Suspect]
     Active Substance: OCRELIZUMAB
  24. OCREVUS [Suspect]
     Active Substance: OCRELIZUMAB
  25. OCREVUS [Suspect]
     Active Substance: OCRELIZUMAB
  26. OCREVUS [Suspect]
     Active Substance: OCRELIZUMAB
  27. OCREVUS [Suspect]
     Active Substance: OCRELIZUMAB
     Route: 042
  28. OCREVUS [Suspect]
     Active Substance: OCRELIZUMAB
     Route: 042
  29. OCREVUS [Suspect]
     Active Substance: OCRELIZUMAB
     Route: 042
  30. OCREVUS [Suspect]
     Active Substance: OCRELIZUMAB
     Route: 042
  31. OCREVUS [Suspect]
     Active Substance: OCRELIZUMAB
  32. OCREVUS [Suspect]
     Active Substance: OCRELIZUMAB
  33. OCREVUS [Suspect]
     Active Substance: OCRELIZUMAB
     Route: 065
  34. OCREVUS [Suspect]
     Active Substance: OCRELIZUMAB
     Route: 065
  35. OCREVUS [Suspect]
     Active Substance: OCRELIZUMAB
  36. OCREVUS [Suspect]
     Active Substance: OCRELIZUMAB
  37. OCREVUS [Suspect]
     Active Substance: OCRELIZUMAB
     Route: 042
  38. OCREVUS [Suspect]
     Active Substance: OCRELIZUMAB
  39. OCREVUS [Suspect]
     Active Substance: OCRELIZUMAB
  40. OCREVUS [Suspect]
     Active Substance: OCRELIZUMAB
     Route: 042
  41. MIRTAZAPINE [Concomitant]
     Active Substance: MIRTAZAPINE
     Indication: Neuralgia
     Dosage: 7.5 MG, 1X/DAY, 0-0-0-1
  42. MIRTAZAPINE [Concomitant]
     Active Substance: MIRTAZAPINE
     Dosage: 7.5 MG, 1X/DAY, 0-0-0-1
     Route: 065
  43. MIRTAZAPINE [Concomitant]
     Active Substance: MIRTAZAPINE
     Dosage: 7.5 MG, 1X/DAY, 0-0-0-1
     Route: 065
  44. MIRTAZAPINE [Concomitant]
     Active Substance: MIRTAZAPINE
     Dosage: 7.5 MG, 1X/DAY, 0-0-0-1
  45. PANTOZOL [Concomitant]
     Active Substance: PANTOPRAZOLE SODIUM
     Indication: Product used for unknown indication
  46. PANTOZOL [Concomitant]
     Active Substance: PANTOPRAZOLE SODIUM
     Route: 065
  47. PANTOZOL [Concomitant]
     Active Substance: PANTOPRAZOLE SODIUM
     Route: 065
  48. PANTOZOL [Concomitant]
     Active Substance: PANTOPRAZOLE SODIUM
  49. DALFAMPRIDINE [Concomitant]
     Active Substance: DALFAMPRIDINE
     Indication: Product used for unknown indication
  50. DALFAMPRIDINE [Concomitant]
     Active Substance: DALFAMPRIDINE
     Route: 065
  51. DALFAMPRIDINE [Concomitant]
     Active Substance: DALFAMPRIDINE
     Route: 065
  52. DALFAMPRIDINE [Concomitant]
     Active Substance: DALFAMPRIDINE
  53. DRONABINOL [Concomitant]
     Active Substance: DRONABINOL
     Indication: Product used for unknown indication
     Dosage: 4 DROP, 4X/DAY
  54. DRONABINOL [Concomitant]
     Active Substance: DRONABINOL
     Dosage: 4 DROP, 4X/DAY
  55. DRONABINOL [Concomitant]
     Active Substance: DRONABINOL
     Dosage: 4 DROP, 4X/DAY
     Route: 065
  56. DRONABINOL [Concomitant]
     Active Substance: DRONABINOL
     Dosage: 4 DROP, 4X/DAY
     Route: 065
  57. DRONABINOL [Concomitant]
     Active Substance: DRONABINOL
  58. DRONABINOL [Concomitant]
     Active Substance: DRONABINOL
  59. DRONABINOL [Concomitant]
     Active Substance: DRONABINOL
     Route: 065
  60. DRONABINOL [Concomitant]
     Active Substance: DRONABINOL
     Route: 065
  61. Simplex [Concomitant]
     Indication: Product used for unknown indication
  62. Simplex [Concomitant]
     Route: 065
  63. Simplex [Concomitant]
     Route: 065
  64. Simplex [Concomitant]
  65. NABIXIMOLS [Concomitant]
     Active Substance: NABIXIMOLS
     Indication: Product used for unknown indication
  66. NABIXIMOLS [Concomitant]
     Active Substance: NABIXIMOLS
     Route: 065
  67. NABIXIMOLS [Concomitant]
     Active Substance: NABIXIMOLS
     Route: 065
  68. NABIXIMOLS [Concomitant]
     Active Substance: NABIXIMOLS
  69. Aqualibra [Concomitant]
     Indication: Product used for unknown indication
  70. Aqualibra [Concomitant]
     Route: 065
  71. Aqualibra [Concomitant]
     Route: 065
  72. Aqualibra [Concomitant]

REACTIONS (55)
  - Multiple sclerosis [Not Recovered/Not Resolved]
  - Cardiovascular insufficiency [Recovered/Resolved]
  - Multiple sclerosis relapse [Recovered/Resolved]
  - Hyperthyroidism [Not Recovered/Not Resolved]
  - Toxicity to various agents [Recovered/Resolved]
  - Toxic nodular goitre [Recovered/Resolved]
  - Pyelitis [Recovered/Resolved]
  - Neuralgia [Not Recovered/Not Resolved]
  - Pyelonephritis [Not Recovered/Not Resolved]
  - Leukopenia [Recovered/Resolved]
  - Ileus paralytic [Not Recovered/Not Resolved]
  - Condition aggravated [Not Recovered/Not Resolved]
  - Sensory disturbance [Recovered/Resolved]
  - Iron deficiency [Recovered/Resolved]
  - Gastrointestinal hypermotility [Recovered/Resolved]
  - Oral mucosal erythema [Recovered/Resolved]
  - Oral pain [Recovered/Resolved]
  - Gastrointestinal infection [Recovered/Resolved]
  - Muscle spasticity [Recovering/Resolving]
  - Urinary tract infection [Recovered/Resolved]
  - Heavy menstrual bleeding [Not Recovered/Not Resolved]
  - Menstrual disorder [Recovered/Resolved]
  - Muscular weakness [Recovered/Resolved]
  - Blood thyroid stimulating hormone decreased [Not Recovered/Not Resolved]
  - Body temperature increased [Recovered/Resolved]
  - B-lymphocyte count decreased [Recovered/Resolved]
  - Gastrointestinal pain [Recovered/Resolved]
  - Renal pain [Not Recovered/Not Resolved]
  - Influenza like illness [Recovered/Resolved]
  - Nasopharyngitis [Recovered/Resolved]
  - Nausea [Recovered/Resolved]
  - Pain [Recovered/Resolved]
  - Headache [Recovered/Resolved]
  - Fatigue [Recovered/Resolved]
  - Hypotension [Recovered/Resolved]
  - Heart rate increased [Recovered/Resolved]
  - Blood pressure decreased [Recovered/Resolved]
  - Asthenia [Recovered/Resolved]
  - Ataxia [Recovered/Resolved]
  - Weight decreased [Recovered/Resolved]
  - Abnormal loss of weight [Not Recovered/Not Resolved]
  - Insomnia [Recovering/Resolving]
  - Chronic gastritis [Recovered/Resolved]
  - Irritability [Recovered/Resolved]
  - Blood thyroid stimulating hormone abnormal [Recovered/Resolved]
  - Injection site bruising [Recovered/Resolved]
  - Injection site swelling [Recovered/Resolved]
  - Muscle tightness [Not Recovered/Not Resolved]
  - Feeling jittery [Recovered/Resolved]
  - COVID-19 [Recovered/Resolved]
  - Peripheral coldness [Not Recovered/Not Resolved]
  - Hypertension [Recovered/Resolved]
  - Paraesthesia [Not Recovered/Not Resolved]
  - Pyrexia [Recovered/Resolved]
  - Cough [Recovered/Resolved]

NARRATIVE: CASE EVENT DATE: 20181012
